FAERS Safety Report 9885032 (Version 1)
Quarter: 2014Q1

REPORT INFORMATION
  Report Type: Spontaneous
  Country: GB (occurrence: GB)
  Receive Date: 20140210
  Receipt Date: 20140210
  Transmission Date: 20141002
  Serious: Yes (Life-Threatening)
  Sender: FDA-Public Use
  Company Number: GB-JNJFOC-20140203947

PATIENT
  Age: 26 Year
  Sex: Male
  Weight: 57.5 kg

DRUGS (3)
  1. REMICADE [Suspect]
     Indication: ANKYLOSING SPONDYLITIS
     Dosage: 5.1 ML, FIRST INFUSION
     Route: 042
     Dates: start: 20131220, end: 20131220
  2. AZATHIOPRINE [Concomitant]
     Route: 065
  3. HUMIRA [Concomitant]
     Route: 065

REACTIONS (6)
  - Presyncope [Unknown]
  - Pallor [Unknown]
  - Hypotension [Recovered/Resolved]
  - Bradycardia [Unknown]
  - Nausea [Unknown]
  - Cold sweat [Unknown]
